FAERS Safety Report 6856541-0 (Version None)
Quarter: 2010Q3

REPORT INFORMATION
  Report Type: 
  Country: None (occurrence: None)
  Receive Date: 20100716
  Receipt Date: 20100716
  Transmission Date: 20110219
  Serious: Yes (Life-Threatening)
  Sender: FDA-Public Use
  Company Number: None

PATIENT
  Age: 71 Year
  Sex: Female
  Weight: 61.6892 kg

DRUGS (1)
  1. PRED FORTE [Suspect]
     Indication: CATARACT
     Dosage: 4 DROPS 2 TIMES INTRAOCULAR
     Route: 031
     Dates: start: 20081004, end: 20081028

REACTIONS (10)
  - ABNORMAL SENSATION IN EYE [None]
  - ASTHMA [None]
  - BLINDNESS UNILATERAL [None]
  - CONDITION AGGRAVATED [None]
  - DRUG DOSE OMISSION [None]
  - INFLUENZA LIKE ILLNESS [None]
  - VISION BLURRED [None]
  - VISUAL ACUITY REDUCED [None]
  - VISUAL FIELD DEFECT [None]
  - VISUAL IMPAIRMENT [None]
